FAERS Safety Report 13387245 (Version 1)
Quarter: 2017Q1

REPORT INFORMATION
  Report Type: Spontaneous
  Country: PT (occurrence: PT)
  Receive Date: 20170330
  Receipt Date: 20170330
  Transmission Date: 20170429
  Serious: Yes (Death, Hospitalization, Other)
  Sender: FDA-Public Use
  Company Number: PT-AMGEN-PRTSP2016161199

PATIENT
  Age: 76 Year
  Sex: Female

DRUGS (1)
  1. ENBREL [Suspect]
     Active Substance: ETANERCEPT
     Indication: RHEUMATOID ARTHRITIS
     Dosage: 50 MG, WEEKLY
     Route: 058
     Dates: start: 20080528, end: 20150703

REACTIONS (5)
  - Superinfection [Recovered/Resolved]
  - Acute endocarditis [Recovered/Resolved]
  - Device related infection [Recovered/Resolved]
  - Cardiovascular disorder [Fatal]
  - Septic arthritis streptococcal [Recovered/Resolved]

NARRATIVE: CASE EVENT DATE: 201506
